FAERS Safety Report 10592849 (Version 2)
Quarter: 2014Q4

REPORT INFORMATION
  Report Type: Spontaneous
  Country: IT (occurrence: IT)
  Receive Date: 20141119
  Receipt Date: 20141124
  Transmission Date: 20150529
  Serious: Yes (Hospitalization)
  Sender: FDA-Public Use
  Company Number: IT-PFIZER INC-2014308984

PATIENT
  Age: 61 Year
  Sex: Female

DRUGS (2)
  1. HALCION [Suspect]
     Active Substance: TRIAZOLAM
     Indication: INSOMNIA
     Dosage: 1 MG, TOTAL
     Route: 048
     Dates: start: 20141105, end: 20141105
  2. ENTUMIN [Concomitant]
     Active Substance: CLOTHIAPINE
     Dosage: 7 GTT, UNK
     Route: 048

REACTIONS (2)
  - Drug abuse [Recovered/Resolved]
  - Sopor [Recovered/Resolved]

NARRATIVE: CASE EVENT DATE: 20141105
